FAERS Safety Report 15786194 (Version 1)
Quarter: 2019Q1

REPORT INFORMATION
  Report Type: Spontaneous
  Country: US (occurrence: US)
  Receive Date: 20190103
  Receipt Date: 20190103
  Transmission Date: 20190417
  Serious: No
  Sender: FDA-Public Use
  Company Number: None

PATIENT
  Age: 29 Year
  Sex: Female
  Weight: 79.83 kg

DRUGS (5)
  1. ZOLOFT [Concomitant]
     Active Substance: SERTRALINE HYDROCHLORIDE
  2. IBUPROFEN. [Concomitant]
     Active Substance: IBUPROFEN
  3. PARAGARD T 380A [Suspect]
     Active Substance: COPPER
  4. TRANSFORM [Concomitant]
  5. IMITREX [Concomitant]
     Active Substance: SUMATRIPTAN SUCCINATE

REACTIONS (17)
  - Nausea [None]
  - Back pain [None]
  - Migraine [None]
  - Anxiety [None]
  - Fatigue [None]
  - Sexual dysfunction [None]
  - Confusional state [None]
  - Complication associated with device [None]
  - Depression [None]
  - Discomfort [None]
  - Weight increased [None]
  - Dysmenorrhoea [None]
  - Dry skin [None]
  - Arthralgia [None]
  - Abdominal distension [None]
  - Pelvic pain [None]
  - Alopecia [None]

NARRATIVE: CASE EVENT DATE: 20150130
